FAERS Safety Report 12690060 (Version 1)
Quarter: 2016Q3

REPORT INFORMATION
  Report Type: Spontaneous
  Country: US (occurrence: US)
  Receive Date: 20160826
  Receipt Date: 20160826
  Transmission Date: 20161109
  Serious: Yes (Other)
  Sender: FDA-Public Use
  Company Number: US-ASCEND THERAPEUTICS-1056773

PATIENT
  Age: 46 Year
  Sex: Female

DRUGS (1)
  1. ESTROGEL [Suspect]
     Active Substance: ESTRADIOL
     Indication: PRODUCT USED FOR UNKNOWN INDICATION
     Route: 062
     Dates: start: 20160630, end: 20160707

REACTIONS (3)
  - Rhinorrhoea [None]
  - Tachycardia [Recovered/Resolved]
  - Cough [None]

NARRATIVE: CASE EVENT DATE: 20160630
